FAERS Safety Report 11323140 (Version 1)
Quarter: 2015Q3

REPORT INFORMATION
  Report Type: Spontaneous
  Country: TR (occurrence: TR)
  Receive Date: 20150730
  Receipt Date: 20150730
  Transmission Date: 20151125
  Serious: Yes (Other)
  Sender: FDA-Public Use
  Company Number: TR-HOSPIRA-2860736

PATIENT
  Age: 36 Year
  Sex: Female

DRUGS (8)
  1. CISPLATIN. [Suspect]
     Active Substance: CISPLATIN
     Indication: T-CELL LYMPHOMA
     Dosage: FOR 24 HOURS ON THE FIRST DAY
     Route: 041
  2. MESNA. [Suspect]
     Active Substance: MESNA
     Indication: T-CELL LYMPHOMA
  3. DEXAMETHASONE. [Suspect]
     Active Substance: DEXAMETHASONE
     Indication: T-CELL LYMPHOMA
  4. ETOPOSIDE. [Suspect]
     Active Substance: ETOPOSIDE
     Indication: T-CELL LYMPHOMA
     Dosage: FOR DAYS 1, 5
  5. METHOTREXATE [Suspect]
     Active Substance: METHOTREXATE
     Indication: PRODUCT USED FOR UNKNOWN INDICATION
     Route: 037
  6. IDARUBICIN [Suspect]
     Active Substance: IDARUBICIN
     Indication: T-CELL LYMPHOMA
     Dosage: FOR DAYS 1, 2
  7. IFOSFAMIDE. [Suspect]
     Active Substance: IFOSFAMIDE
     Indication: T-CELL LYMPHOMA
  8. CYTARABINE. [Suspect]
     Active Substance: CYTARABINE
     Indication: T-CELL LYMPHOMA
     Dosage: 2 GR/M2, PER 12 HOURS ON THE SECOND DAY
     Route: 041

REACTIONS (1)
  - Leukoencephalopathy [Not Recovered/Not Resolved]
